FAERS Safety Report 6134049-8 (Version None)
Quarter: 2009Q1

REPORT INFORMATION
  Report Type: 
  Country: None (occurrence: None)
  Receive Date: 20090326
  Receipt Date: 20090320
  Transmission Date: 20090719
  Serious: No
  Sender: FDA-Public Use
  Company Number: US-B.I. PHARMACEUTICALS,INC./RIDGEFIELD-2009-BP-03525BP

PATIENT
  Sex: Male

DRUGS (4)
  1. FLOMAX [Suspect]
     Indication: BENIGN PROSTATIC HYPERPLASIA
     Dosage: .4MG
     Route: 048
     Dates: start: 20090318
  2. CARDIAZEM [Concomitant]
     Indication: HYPERTENSION
  3. COUMADIN [Concomitant]
  4. RESTASIS [Concomitant]
     Indication: DRY EYE

REACTIONS (2)
  - NASAL DRYNESS [None]
  - OEDEMA PERIPHERAL [None]
